FAERS Safety Report 6266951-0 (Version None)
Quarter: 2009Q3

REPORT INFORMATION
  Report Type: 
  Country: None (occurrence: None)
  Receive Date: 20090714
  Receipt Date: 20090702
  Transmission Date: 20100115
  Serious: Yes (Hospitalization, Disabling, Other)
  Sender: FDA-Public Use
  Company Number: US-ROCHE-545016

PATIENT
  Sex: Female
  Weight: 68 kg

DRUGS (16)
  1. ACCUTANE [Suspect]
     Indication: ACNE
     Dosage: THE PATIENT TOOK ACCUTANE 20 MG IN MORNING AND 40 MG IN EVENING.
     Route: 065
     Dates: start: 20030103, end: 20030523
  2. AMNESTEEM [Suspect]
     Indication: ACNE
     Route: 065
     Dates: start: 20030201, end: 20030301
  3. BENZAMYCIN [Concomitant]
     Indication: ACNE
     Dates: start: 19970729
  4. CLEOCIN T [Concomitant]
     Indication: ACNE
     Dates: start: 19970729
  5. RETIN-A [Concomitant]
     Indication: ACNE
     Dates: start: 19980310
  6. DOXYCYCLIN [Concomitant]
     Indication: ACNE
     Dates: start: 19980310
  7. MINOCIN [Concomitant]
     Indication: ACNE
     Dates: start: 19980922
  8. TRIAZ [Concomitant]
     Indication: ACNE
     Dates: start: 19981117
  9. DESOWEN [Concomitant]
     Dates: start: 19991220
  10. DIFFERIN [Concomitant]
     Indication: ACNE
     Dates: start: 20000915
  11. AMPICILLIN [Concomitant]
     Indication: ACNE
     Dates: start: 20001010
  12. TAZORAC [Concomitant]
     Indication: ACNE
     Dates: start: 20001010
  13. NOVACET [Concomitant]
     Indication: ACNE
     Dates: start: 20010103
  14. MONODOX [Concomitant]
     Indication: ACNE
     Dates: start: 20010103
  15. SULFACETAMIDE [Concomitant]
     Dates: start: 20010519
  16. BIRTH CONTROL PILL [Concomitant]

REACTIONS (18)
  - ANAL FISSURE [None]
  - BACK PAIN [None]
  - COLITIS [None]
  - DERMATITIS CONTACT [None]
  - EAR PAIN [None]
  - ECZEMA [None]
  - GOITRE [None]
  - HAEMORRHOIDS [None]
  - HYPOTHYROIDISM [None]
  - INFLAMMATORY BOWEL DISEASE [None]
  - INTERVERTEBRAL DISC DEGENERATION [None]
  - IRRITABLE BOWEL SYNDROME [None]
  - LIPIDS INCREASED [None]
  - PHOTOPSIA [None]
  - PROCTITIS [None]
  - UPPER RESPIRATORY TRACT INFECTION [None]
  - VIRAL INFECTION [None]
  - XEROSIS [None]
